FAERS Safety Report 11241354 (Version 2)
Quarter: 2015Q3

REPORT INFORMATION
  Report Type: Spontaneous
  Country: JP (occurrence: JP)
  Receive Date: 20150706
  Receipt Date: 20150709
  Transmission Date: 20151125
  Serious: No
  Sender: FDA-Public Use
  Company Number: JP-PFIZER INC-2015219649

PATIENT
  Age: 80 Year
  Sex: Female

DRUGS (4)
  1. LYRICA [Suspect]
     Active Substance: PREGABALIN
     Indication: SCIATICA
     Dosage: 25 MG, 2X/DAY
     Route: 048
     Dates: start: 20150206, end: 20150420
  2. HYPEN [Concomitant]
     Active Substance: ETODOLAC
     Indication: SCIATICA
     Dosage: 200 MG, 2X/DAY
     Route: 048
     Dates: end: 20150420
  3. YAKUBAN [Concomitant]
     Active Substance: FLURBIPROFEN
     Indication: SCIATICA
     Dosage: UNK
     Route: 062
     Dates: start: 20150206, end: 20150420
  4. GASTER [Concomitant]
     Active Substance: FAMOTIDINE
     Dosage: 10 MG, 2X/DAY
     Route: 048
     Dates: end: 20150420

REACTIONS (4)
  - Drug ineffective [Unknown]
  - Gait disturbance [Recovered/Resolved]
  - Feeling abnormal [Unknown]
  - Dizziness [Recovered/Resolved]

NARRATIVE: CASE EVENT DATE: 20150219
